FAERS Safety Report 15746613 (Version 1)
Quarter: 2018Q4

REPORT INFORMATION
  Report Type: Spontaneous
  Country: FR (occurrence: FR)
  Receive Date: 20181220
  Receipt Date: 20181220
  Transmission Date: 20190205
  Serious: Yes (Hospitalization)
  Sender: FDA-Public Use
  Company Number: FR-TEVA-2018-FR-989158

PATIENT
  Age: 49 Year
  Sex: Female
  Weight: 64 kg

DRUGS (3)
  1. PROPRANOLOL [Suspect]
     Active Substance: PROPRANOLOL HYDROCHLORIDE
     Indication: MIGRAINE
     Dosage: 120 MILLIGRAM DAILY;
     Route: 048
     Dates: start: 2015
  2. CORTANCYL [Concomitant]
     Active Substance: PREDNISONE
  3. TIGREAT [Suspect]
     Active Substance: FROVATRIPTAN
     Indication: MIGRAINE
     Route: 048
     Dates: start: 2015

REACTIONS (2)
  - Tongue oedema [Recovering/Resolving]
  - Macroglossia [Recovering/Resolving]

NARRATIVE: CASE EVENT DATE: 201709
